FAERS Safety Report 9686206 (Version 1)
Quarter: 2013Q4

REPORT INFORMATION
  Report Type: Spontaneous
  Country: US (occurrence: US)
  Receive Date: 20131113
  Receipt Date: 20131113
  Transmission Date: 20140711
  Serious: No
  Sender: FDA-Public Use
  Company Number: US-CUBIST PHARMACEUTICAL, INC.-2012CBST000049

PATIENT
  Sex: 0

DRUGS (3)
  1. CUBICIN [Suspect]
     Indication: DEVICE RELATED INFECTION
     Route: 065
  2. CUBICIN [Suspect]
     Indication: OFF LABEL USE
  3. SYNERCID [Concomitant]
     Indication: DEVICE RELATED INFECTION
     Dosage: UNK
     Route: 065

REACTIONS (3)
  - Infection [Unknown]
  - Antimicrobial susceptibility test resistant [Unknown]
  - Drug ineffective for unapproved indication [Unknown]
